FAERS Safety Report 5771116-2 (Version None)
Quarter: 2008Q2

REPORT INFORMATION
  Report Type: 
  Country: None (occurrence: None)
  Receive Date: 20080613
  Receipt Date: 20080521
  Transmission Date: 20081010
  Serious: No
  Sender: FDA-Public Use
  Company Number: US-ABBOTT-08P-163-0454050-00

PATIENT
  Sex: Male
  Weight: 74.91 kg

DRUGS (6)
  1. HUMIRA [Suspect]
     Indication: PSORIASIS
     Route: 050
     Dates: start: 20070214
  2. HUMIRA [Suspect]
     Indication: ARTHRITIS
  3. ULOBETASOL PROPIONATE [Concomitant]
     Indication: PSORIASIS
     Dosage: 0.05%
     Route: 061
     Dates: start: 20060101
  4. CALCIPOTRIENE [Concomitant]
     Indication: PSORIASIS
     Dosage: 0.05
     Route: 061
     Dates: start: 20060101
  5. TACLONEX [Concomitant]
     Indication: PSORIASIS
     Dosage: 0.005%
     Route: 061
  6. NEBUTONE [Concomitant]
     Indication: ASTHMA
     Route: 055
     Dates: start: 20070101

REACTIONS (3)
  - ACTINIC KERATOSIS [None]
  - DRUG INEFFECTIVE [None]
  - PSORIASIS [None]
